FAERS Safety Report 7875964 (Version 9)
Quarter: 2013Q4

REPORT INFORMATION
  Report Type: Report from Study
  Country: DE (occurrence: DE)
  Receive Date: 20110329
  Receipt Date: 20131004
  Transmission Date: 20140711
  Serious: Yes (Hospitalization)
  Sender: FDA-Public Use
  Company Number: PHHO2010DE14489

PATIENT
  Sex: 0

DRUGS (1)
  1. AMN107 [Suspect]
     Indication: GASTROINTESTINAL STROMAL TUMOUR
     Dosage: 400 MG, BID
     Route: 048
     Dates: start: 20091002, end: 20130910

REACTIONS (4)
  - Peripheral arterial occlusive disease [Recovered/Resolved]
  - Arterial restenosis [Recovered/Resolved]
  - Concomitant disease progression [Recovered/Resolved]
  - Coronary artery disease [Recovering/Resolving]
